FAERS Safety Report 25094897 (Version 1)
Quarter: 2025Q1

REPORT INFORMATION
  Report Type: Spontaneous
  Country: US (occurrence: None)
  Receive Date: 20250319
  Receipt Date: 20250319
  Transmission Date: 20250409
  Serious: Yes (Hospitalization)
  Sender: FDA-CTU
  Company Number: None

PATIENT
  Sex: Female
  Weight: 73.48 kg

DRUGS (3)
  1. WINREVAIR [Suspect]
     Active Substance: SOTATERCEPT-CSRK
     Route: 058
     Dates: start: 202409
  2. TADALAFIL [Concomitant]
     Active Substance: TADALAFIL
  3. C-TREPROSTINIL(3ML)RM(PAP) [Concomitant]

REACTIONS (4)
  - Dehydration [None]
  - Blood creatinine abnormal [None]
  - Hypophagia [None]
  - Weight increased [None]
